FAERS Safety Report 15470206 (Version 2)
Quarter: 2019Q4

REPORT INFORMATION
  Report Type: Report from Study
  Country: FR (occurrence: FR)
  Receive Date: 20181005
  Receipt Date: 20191213
  Transmission Date: 20200122
  Serious: Yes (Hospitalization, Other)
  Sender: FDA-Public Use
  Company Number: FR-ASTRAZENECA-2018SF19236

PATIENT
  Age: 22940 Day
  Sex: Female
  Weight: 65 kg

DRUGS (10)
  1. IPRATROPIUM BROMIDE\FENOTEROL HYDROBROMIDE [Concomitant]
     Active Substance: FENOTEROL HYDROBROMIDE\IPRATROPIUM BROMIDE
  2. VITAMIN A [Concomitant]
     Active Substance: VITAMIN A
  3. MICARDIS [Concomitant]
     Active Substance: TELMISARTAN
     Indication: HYPERTENSION
     Route: 065
     Dates: start: 2009
  4. LERCANIDIPINE [Concomitant]
     Active Substance: LERCANIDIPINE
     Indication: HYPERTENSION
     Route: 065
     Dates: start: 2009
  5. DEPAMIDE [Concomitant]
     Active Substance: VALPROMIDE
     Indication: BIPOLAR DISORDER
     Route: 048
     Dates: start: 2009
  6. LEVOTHYROX [Concomitant]
     Active Substance: LEVOTHYROXINE
     Indication: THYROID DISORDER
     Dosage: 100 MCG DAILY
     Route: 048
     Dates: start: 2013
  7. DURVALUMAB. [Suspect]
     Active Substance: DURVALUMAB
     Indication: NON-SMALL CELL LUNG CANCER STAGE III
     Route: 042
     Dates: start: 20180802, end: 201808
  8. TELMISARTAN. [Concomitant]
     Active Substance: TELMISARTAN
     Indication: HYPERTENSION
     Route: 048
     Dates: start: 2009
  9. STAGID [Concomitant]
     Active Substance: METFORMIN PAMOATE
     Indication: TYPE 2 DIABETES MELLITUS
     Route: 065
  10. SIMVASTATINE [Concomitant]
     Active Substance: SIMVASTATIN
     Indication: BLOOD CHOLESTEROL
     Route: 048
     Dates: start: 2009

REACTIONS (3)
  - Fall [Recovered/Resolved with Sequelae]
  - Guillain-Barre syndrome [Recovering/Resolving]
  - Gait disturbance [Unknown]

NARRATIVE: CASE EVENT DATE: 20180817
